FAERS Safety Report 8223782-X (Version None)
Quarter: 2012Q1

REPORT INFORMATION
  Report Type: 
  Country: None (occurrence: None)
  Receive Date: 20120321
  Receipt Date: 20120321
  Transmission Date: 20120608
  Serious: No
  Sender: FDA-Public Use
  Company Number: None

PATIENT
  Age: 50 Year
  Sex: Male
  Weight: 83.914 kg

DRUGS (1)
  1. NARDIL [Suspect]
     Indication: MAJOR DEPRESSION
     Dosage: 120 MG
     Route: 048

REACTIONS (9)
  - DEPRESSION [None]
  - PRODUCT QUALITY ISSUE [None]
  - MALAISE [None]
  - DIZZINESS [None]
  - WITHDRAWAL SYNDROME [None]
  - IMPAIRED WORK ABILITY [None]
  - PRODUCT SUBSTITUTION ISSUE [None]
  - FALL [None]
  - LIMB INJURY [None]
